FAERS Safety Report 7532403-0 (Version None)
Quarter: 2011Q2

REPORT INFORMATION
  Report Type: 
  Country: None (occurrence: None)
  Receive Date: 20110608
  Receipt Date: 20110601
  Transmission Date: 20111010
  Serious: Yes (Death)
  Sender: FDA-Public Use
  Company Number: GB-ABBOTT-11P-167-0729694-00

PATIENT
  Sex: Female

DRUGS (4)
  1. PHENOBARBITAL TAB [Suspect]
     Indication: EPILEPSY
  2. VALPROATE SODIUM [Suspect]
     Indication: EPILEPSY
  3. CARBAMAZEPINE [Suspect]
     Indication: EPILEPSY
  4. TOPIRAMATE [Suspect]
     Indication: EPILEPSY
     Route: 048

REACTIONS (1)
  - STATUS EPILEPTICUS [None]
